FAERS Safety Report 8251118-7 (Version None)
Quarter: 2012Q2

REPORT INFORMATION
  Report Type: 
  Country: None (occurrence: None)
  Receive Date: 20120402
  Receipt Date: 20120328
  Transmission Date: 20120825
  Serious: Yes (Other)
  Sender: FDA-Public Use
  Company Number: US-PFIZER INC-2012080507

PATIENT

DRUGS (1)
  1. PROTONIX [Suspect]
     Dosage: 40 MG, 1X/DAY

REACTIONS (2)
  - MYOCARDIAL INFARCTION [None]
  - JOINT INJURY [None]
